FAERS Safety Report 5134386-X (Version None)
Quarter: 2006Q4

REPORT INFORMATION
  Report Type: 
  Country: None (occurrence: None)
  Receive Date: 20061025
  Receipt Date: 20060922
  Transmission Date: 20070319
  Serious: Yes (Other)
  Sender: FDA-Public Use
  Company Number: PHRM2006FR02702

PATIENT
  Age: 37 Year
  Sex: Female
  Weight: 70 kg

DRUGS (3)
  1. TAREG [Suspect]
     Indication: HYPERTENSION
     Dosage: 80 MG, QD
     Route: 048
  2. TAREG [Suspect]
     Dosage: 40 MG, QD
     Route: 048
     Dates: start: 20030101, end: 20050101
  3. ADEPAL [Concomitant]

REACTIONS (4)
  - ASTHENIA [None]
  - DISCOMFORT [None]
  - IMPAIRED DRIVING ABILITY [None]
  - SOMNOLENCE [None]
